FAERS Safety Report 8495923-0 (Version None)
Quarter: 2012Q3

REPORT INFORMATION
  Report Type: 
  Country: None (occurrence: None)
  Receive Date: 20120709
  Receipt Date: 20120629
  Transmission Date: 20120928
  Serious: Yes (Other)
  Sender: FDA-Public Use
  Company Number: US-GLAXOSMITHKLINE-A0877754A

PATIENT
  Age: 58 Year
  Sex: Male
  Weight: 86.4 kg

DRUGS (4)
  1. AVANDIA [Suspect]
     Indication: DIABETES MELLITUS
     Dosage: 8MG THREE TIMES PER DAY
     Route: 048
     Dates: start: 19990101, end: 20070101
  2. PREVACID [Concomitant]
  3. GLUCOVANCE [Concomitant]
  4. VIOXX [Concomitant]

REACTIONS (2)
  - RENAL FAILURE [None]
  - CARDIAC FAILURE CONGESTIVE [None]
